FAERS Safety Report 7760657-4 (Version None)
Quarter: 2011Q3

REPORT INFORMATION
  Report Type: 
  Country: None (occurrence: None)
  Receive Date: 20110919
  Receipt Date: 20110914
  Transmission Date: 20111222
  Serious: Yes (Death, Life-Threatening, Hospitalization)
  Sender: FDA-Public Use
  Company Number: US-PFIZER INC-2011192735

PATIENT
  Sex: Female
  Weight: 87.7 kg

DRUGS (15)
  1. OMEPRAZOLE [Concomitant]
     Dosage: 20 MG, 1X/DAY
     Route: 048
  2. PROCHLORPERAZINE [Concomitant]
     Dosage: 10 MG, DAILY
     Route: 048
  3. CRIZOTINIB [Suspect]
     Indication: NON-SMALL CELL LUNG CANCER
     Dosage: 250 MG, 2X/DAY
     Route: 048
     Dates: start: 20110727, end: 20110816
  4. VICOPROFEN [Concomitant]
     Dosage: 7.5-200 MG Q 4HRS PRN
     Route: 048
  5. CLONAZEPAM [Concomitant]
     Dosage: 0.5 MG, DAILY
     Route: 048
     Dates: start: 20110807
  6. ALBUTEROL [Concomitant]
     Dosage: 90 MCG, 1 PUFF PRN
     Route: 055
     Dates: start: 20110807
  7. COLACE [Concomitant]
     Dosage: 100 MG, 1X/DAY
     Route: 048
  8. ONDANSETRON [Concomitant]
     Dosage: 4 MG, AS NEEDED
     Route: 048
  9. CALCIUM [Concomitant]
     Dosage: 500 MG, 2X/DAY
     Route: 048
  10. LEVOTHYROXINE [Concomitant]
     Dosage: 100 MG, 1X/DAY
     Route: 048
  11. OXYCONTIN [Concomitant]
     Dosage: 20 MG, 2X/DAY
     Route: 048
     Dates: start: 20110726
  12. LACTULOSE [Concomitant]
     Dosage: 20/30 GM/ML, 15 ML Q6 HRS PRN
     Route: 048
     Dates: start: 20110705
  13. DEXAMETHASONE [Suspect]
     Dosage: 4 MG, 2X/DAY
     Route: 048
     Dates: start: 20110705
  14. LIPITOR [Concomitant]
     Dosage: 10 MG, 1X/DAY
     Route: 048
  15. FOLIC ACID [Concomitant]
     Dosage: 1 MG, 1X/DAY
     Route: 048

REACTIONS (1)
  - DYSPNOEA [None]
